FAERS Safety Report 4958880-7 (Version None)
Quarter: 2006Q1

REPORT INFORMATION
  Report Type: 
  Country: None (occurrence: None)
  Receive Date: 20060329
  Receipt Date: 20060329
  Transmission Date: 20060701
  Serious: No
  Sender: FDA-Public Use
  Company Number: None

PATIENT
  Sex: Female
  Weight: 87.5442 kg

DRUGS (3)
  1. OXYCONTIN [Suspect]
     Indication: INTERVERTEBRAL DISC PROTRUSION
     Dosage: 80 MG PO BID
     Route: 048
  2. OXYCONTIN [Suspect]
     Indication: PAIN
     Dosage: 80 MG PO BID
     Route: 048
  3. OXYCONTIN [Suspect]
     Indication: SLEEP APNOEA SYNDROME
     Dosage: 80 MG PO BID
     Route: 048

REACTIONS (2)
  - DRUG INEFFECTIVE [None]
  - THERAPEUTIC RESPONSE UNEXPECTED WITH DRUG SUBSTITUTION [None]
